FAERS Safety Report 8824903 (Version 1)
Quarter: 2012Q4

REPORT INFORMATION
  Report Type: 
  Country: US (occurrence: US)
  Receive Date: 20121004
  Receipt Date: 20121004
  Transmission Date: 20130627
  Serious: No
  Sender: FDA-Public Use
  Company Number: US-ASTRAZENECA-2012SE75808

PATIENT
  Sex: Male

DRUGS (1)
  1. RHINOCORT AQUA [Suspect]
     Route: 045

REACTIONS (4)
  - Dyspnoea [Unknown]
  - Sleep disorder due to general medical condition, insomnia type [Unknown]
  - Hypersensitivity [Unknown]
  - Drug dose omission [Unknown]
